FAERS Safety Report 7502449-7 (Version None)
Quarter: 2011Q2

REPORT INFORMATION
  Report Type: 
  Country: None (occurrence: None)
  Receive Date: 20110525
  Receipt Date: 20110516
  Transmission Date: 20111010
  Serious: Yes (Death, Other)
  Sender: FDA-Public Use
  Company Number: US-BAYER-201020477NA

PATIENT
  Age: 52 Year
  Sex: Female
  Weight: 75 kg

DRUGS (5)
  1. ALBUTEROL SULFATE AUTOHALER [Concomitant]
  2. CENESTIN [Concomitant]
     Indication: OESTROGEN THERAPY
     Dosage: UNK
     Dates: start: 20050701, end: 20051018
  3. YASMIN [Suspect]
     Dosage: UNK
     Dates: start: 20050920, end: 20051018
  4. YASMIN [Suspect]
     Dosage: AS USED DOSE: UNK
     Route: 048
     Dates: start: 20040601, end: 20051015
  5. LEVAQUIN [Concomitant]

REACTIONS (1)
  - PULMONARY EMBOLISM [None]
